FAERS Safety Report 10093504 (Version 1)
Quarter: 2014Q2

REPORT INFORMATION
  Report Type: Spontaneous
  Country: US (occurrence: US)
  Receive Date: 20140421
  Receipt Date: 20140421
  Transmission Date: 20141212
  Serious: No
  Sender: FDA-Public Use
  Company Number: US-SA-2014SA018641

PATIENT
  Age: 65 Year
  Sex: Female
  Weight: 81.19 kg

DRUGS (5)
  1. ALLEGRA [Suspect]
     Indication: HYPERSENSITIVITY
     Dosage: TAKEN FROM: 15 YEARS.
     Route: 048
  2. ALLEGRA [Suspect]
     Indication: ASTHMA
     Dosage: TAKEN FROM: 15 YEARS.
     Route: 048
  3. SINGULAIR [Concomitant]
     Indication: ASTHMA
  4. PRAVASTATIN [Concomitant]
     Indication: BLOOD CHOLESTEROL
     Dates: start: 1999
  5. DIOVAN [Concomitant]
     Indication: BLOOD PRESSURE
     Dates: start: 2009

REACTIONS (2)
  - Nervousness [Unknown]
  - Wrong technique in drug usage process [Unknown]
